FAERS Safety Report 4342507-1 (Version None)
Quarter: 2004Q2

REPORT INFORMATION
  Report Type: 
  Country: None (occurrence: None)
  Receive Date: 20040420
  Receipt Date: 20040420
  Transmission Date: 20050107
  Serious: Yes (Other)
  Sender: FDA-Public Use
  Company Number: None

PATIENT
  Sex: Female
  Weight: 86.1834 kg

DRUGS (4)
  1. DEMEROL [Suspect]
     Indication: PAIN
     Dosage: 25 MG PRN X 1 IV
     Route: 042
  2. BISACODYL [Concomitant]
  3. D5W/LACTATED RINGER'S WITH 20 MEQ POTASSIUM [Concomitant]
  4. PROMETHAZINE [Concomitant]

REACTIONS (3)
  - INJECTION SITE RASH [None]
  - INJECTION SITE URTICARIA [None]
  - MEDICATION ERROR [None]
